FAERS Safety Report 13292921 (Version 2)
Quarter: 2017Q1

REPORT INFORMATION
  Report Type: Report from Study
  Country: US (occurrence: US)
  Receive Date: 20170303
  Receipt Date: 20170303
  Transmission Date: 20170428
  Serious: Yes (Other)
  Sender: FDA-Public Use
  Company Number: US-SAOL THERAPEUTICS-0701207962

PATIENT
  Age: 48 Year
  Sex: Female

DRUGS (1)
  1. BACLOFEN. [Suspect]
     Active Substance: BACLOFEN
     Indication: PAIN
     Dosage: 850 ?G, \DAY
     Route: 037

REACTIONS (5)
  - Medical device site fibrosis [Unknown]
  - Cerebrospinal fluid leakage [Unknown]
  - Off label use [Unknown]
  - Therapy non-responder [Unknown]
  - Device occlusion [Unknown]

NARRATIVE: CASE EVENT DATE: 20040106
